FAERS Safety Report 8977482 (Version 1)
Quarter: 2012Q4

REPORT INFORMATION
  Report Type: 
  Country: GB (occurrence: GB)
  Receive Date: 20121219
  Receipt Date: 20121219
  Transmission Date: 20130627
  Serious: Yes (Hospitalization)
  Sender: FDA-Public Use
  Company Number: GB-ASTRAZENECA-2012SE92991

PATIENT
  Age: 3287 Day
  Sex: Female
  Weight: 28 kg

DRUGS (11)
  1. MEROPENEM [Suspect]
     Route: 042
     Dates: start: 20121120, end: 20121120
  2. AZITHROMYCIN [Concomitant]
  3. COLECALCIFEROL [Concomitant]
  4. COLOMYCIN [Concomitant]
  5. CREON [Concomitant]
  6. DORNASE ALFA [Concomitant]
  7. FLUCLOXACILLIN [Concomitant]
  8. PREDNISOLONE [Concomitant]
  9. VITAMIN A [Concomitant]
  10. VITAMIN D [Concomitant]
  11. VITAMIN E SUBSTANCES [Concomitant]

REACTIONS (6)
  - Chest discomfort [Recovered/Resolved]
  - Cyanosis [Recovered/Resolved]
  - Cough [Recovered/Resolved]
  - Skin discolouration [Recovered/Resolved]
  - Hypersensitivity [Recovered/Resolved]
  - Erythema [Recovered/Resolved]
